FAERS Safety Report 8455998-1 (Version None)
Quarter: 2012Q2

REPORT INFORMATION
  Report Type: 
  Country: None (occurrence: None)
  Receive Date: 20120621
  Receipt Date: 20120606
  Transmission Date: 20120825
  Serious: Yes (Hospitalization)
  Sender: FDA-Public Use
  Company Number: AU-WATSON-2012-09943

PATIENT
  Age: 52 Year
  Sex: Female

DRUGS (1)
  1. BACLOFEN [Suspect]
     Indication: OVERDOSE
     Dosage: 750 MG, SINGLE
     Route: 065

REACTIONS (4)
  - COMA [None]
  - DELIRIUM [None]
  - OVERDOSE [None]
  - CONVULSION [None]
